FAERS Safety Report 5750620-7 (Version None)
Quarter: 2008Q2

REPORT INFORMATION
  Report Type: 
  Country: None (occurrence: None)
  Receive Date: 20080528
  Receipt Date: 20080520
  Transmission Date: 20081010
  Serious: Yes (Death)
  Sender: FDA-Public Use
  Company Number: IN-AVENTIS-200812330EU

PATIENT
  Age: 70 Year
  Sex: Male

DRUGS (5)
  1. CLEXANE [Suspect]
     Route: 042
  2. CLEXANE [Suspect]
     Route: 058
  3. TIROFIBAN [Concomitant]
     Route: 042
  4. TIROFIBAN [Concomitant]
     Dosage: DOSE QUANTITY: 10; DAILY DOSE UNIT: MILLILITRE PER HOUR
     Route: 042
  5. STREPTOKINASE [Concomitant]
     Dosage: DOSE: UNK
     Route: 022

REACTIONS (1)
  - CORONARY ARTERY THROMBOSIS [None]
